FAERS Safety Report 4487389-2 (Version None)
Quarter: 2004Q4

REPORT INFORMATION
  Report Type: 
  Country: None (occurrence: None)
  Receive Date: 20041027
  Receipt Date: 20041015
  Transmission Date: 20050328
  Serious: Yes (Hospitalization, Disabling, Other)
  Sender: FDA-Public Use
  Company Number: AT-MERCK-0410AUT00062

PATIENT
  Sex: Female

DRUGS (2)
  1. VIOXX [Suspect]
     Indication: OSTEOARTHRITIS
     Route: 048
     Dates: start: 20000101
  2. RADIOGRAPHIC CONTRAST MEDIUM (UNSPECIFIED) [Suspect]
     Indication: ANGIOGRAM
     Route: 065
     Dates: start: 20030801, end: 20040801

REACTIONS (4)
  - FOOD POISONING [None]
  - MYOCARDIAL INFARCTION [None]
  - PERIPHERAL VASCULAR DISORDER [None]
  - RENAL DISORDER [None]
